FAERS Safety Report 10069056 (Version 5)
Quarter: 2014Q4

REPORT INFORMATION
  Report Type: Spontaneous
  Country: JP (occurrence: JP)
  Receive Date: 20140409
  Receipt Date: 20141116
  Transmission Date: 20150528
  Serious: Yes (Other)
  Sender: FDA-Public Use
  Company Number: PHHY2014JP040372

PATIENT
  Age: 38 Year
  Sex: Female

DRUGS (9)
  1. BENAMBAX [Concomitant]
     Active Substance: PENTAMIDINE
     Indication: ANTIFUNGAL PROPHYLAXIS
     Route: 055
  2. GUSPERIMUS HYDROCHLORIDE [Concomitant]
     Indication: RENAL TRANSPLANT
     Route: 065
  3. VALGANCICLOVIR [Concomitant]
     Active Substance: VALGANCICLOVIR
     Indication: ANTIVIRAL PROPHYLAXIS
     Route: 048
  4. SIMULECT [Concomitant]
     Active Substance: BASILIXIMAB
     Indication: RENAL TRANSPLANT
     Dosage: 20 MG, UNK
     Route: 042
  5. THYMOGLOBULINE [Suspect]
     Active Substance: LAPINE T-LYMPHOCYTE IMMUNE GLOBULIN
     Indication: KIDNEY TRANSPLANT REJECTION
     Route: 042
  6. RITUXIMAB [Concomitant]
     Active Substance: RITUXIMAB
     Indication: RENAL TRANSPLANT
     Dosage: 100 MG, UNK
     Route: 065
  7. CERTICAN [Suspect]
     Active Substance: EVEROLIMUS
     Indication: RENAL TRANSPLANT
     Route: 048
  8. TACROLIMUS. [Suspect]
     Active Substance: TACROLIMUS
     Indication: RENAL TRANSPLANT
     Route: 065
  9. MYCOPHENOLATE MOFETIL. [Suspect]
     Active Substance: MYCOPHENOLATE MOFETIL
     Indication: RENAL TRANSPLANT
     Route: 048

REACTIONS (11)
  - Thrombotic microangiopathy [Recovering/Resolving]
  - Haemolytic anaemia [Recovering/Resolving]
  - Platelet count decreased [Recovering/Resolving]
  - Oropharyngeal pain [Unknown]
  - Bacterial infection [Unknown]
  - Drug ineffective [Unknown]
  - Hyperthermia [Unknown]
  - Haematuria [Recovering/Resolving]
  - Haptoglobin decreased [Recovering/Resolving]
  - Diarrhoea [Unknown]
  - Transplant rejection [Unknown]
